FAERS Safety Report 7919455-0 (Version None)
Quarter: 2011Q4

REPORT INFORMATION
  Report Type: 
  Country: None (occurrence: None)
  Receive Date: 20111115
  Receipt Date: 20111103
  Transmission Date: 20120403
  Serious: Yes (Other)
  Sender: FDA-Public Use
  Company Number: 2011SP051973

PATIENT
  Sex: Female

DRUGS (3)
  1. PEG-INTRON [Suspect]
     Indication: HEPATITIS C
     Dosage: ;UNK;UNK
     Dates: start: 20110812
  2. VICTRELIS [Suspect]
     Indication: HEPATITIS C
     Dosage: ;UNK;UNK
     Dates: start: 20110913
  3. RIBAVIRIN [Suspect]
     Indication: HEPATITIS C
     Dosage: ;UNK;UNK
     Dates: start: 20110812

REACTIONS (7)
  - DYSPNOEA EXERTIONAL [None]
  - BLOOD THYROID STIMULATING HORMONE INCREASED [None]
  - ASTHENIA [None]
  - URINARY TRACT INFECTION [None]
  - THYROID DISORDER [None]
  - RASH [None]
  - HAEMOGLOBIN DECREASED [None]
